FAERS Safety Report 7811887-4 (Version None)
Quarter: 2011Q4

REPORT INFORMATION
  Report Type: 
  Country: None (occurrence: None)
  Receive Date: 20111013
  Receipt Date: 20111006
  Transmission Date: 20120403
  Serious: Yes (Hospitalization, Other)
  Sender: FDA-Public Use
  Company Number: PHEH2011US06129

PATIENT
  Age: 18 Year
  Sex: Male
  Weight: 113.38 kg

DRUGS (2)
  1. FANAPT [Suspect]
     Dosage: 6 MG, DAILY
     Route: 048
  2. FANAPT [Suspect]
     Indication: AFFECTIVE DISORDER
     Dosage: 1 MG, DAILY
     Route: 048
     Dates: start: 20110316, end: 20110318

REACTIONS (7)
  - BLOOD PRESSURE INCREASED [None]
  - PRODUCT LABEL CONFUSION [None]
  - OVERDOSE [None]
  - SYNCOPE [None]
  - TACHYCARDIA [None]
  - DEHYDRATION [None]
  - CONFUSIONAL STATE [None]
